FAERS Safety Report 13710880 (Version 1)
Quarter: 2017Q3

REPORT INFORMATION
  Report Type: Report from Study
  Country: US (occurrence: US)
  Receive Date: 20170703
  Receipt Date: 20170703
  Transmission Date: 20171127
  Serious: Yes (Other)
  Sender: FDA-Public Use
  Company Number: US-BAYER-2017-122168

PATIENT
  Age: 10 Year
  Sex: Female

DRUGS (4)
  1. ASPIRIN. [Interacting]
     Active Substance: ASPIRIN
     Indication: CORONARY ARTERY ANEURYSM
  2. ASPIRIN. [Suspect]
     Active Substance: ASPIRIN
     Indication: KAWASAKI^S DISEASE
     Dosage: (3-5 MG/KG/D ROUNDED TO THE NEAREST ONE-HALF TABLET)
  3. WARFARIN [Interacting]
     Active Substance: WARFARIN
     Indication: KAWASAKI^S DISEASE
  4. WARFARIN [Interacting]
     Active Substance: WARFARIN
     Indication: CORONARY ARTERY ANEURYSM

REACTIONS (11)
  - Drug administration error [None]
  - International normalised ratio increased [None]
  - Pericardial haemorrhage [None]
  - International normalised ratio decreased [None]
  - Drug administered to patient of inappropriate age [None]
  - Epistaxis [None]
  - Product use in unapproved indication [None]
  - Haemorrhagic anaemia [None]
  - Off label use [None]
  - Labelled drug-drug interaction medication error [None]
  - Menorrhagia [None]
